FAERS Safety Report 5565859-3 (Version None)
Quarter: 2007Q4

REPORT INFORMATION
  Report Type: 
  Country: None (occurrence: None)
  Receive Date: 20071213
  Receipt Date: 20071205
  Transmission Date: 20080405
  Serious: Yes (Other)
  Sender: FDA-Public Use
  Company Number: CHNY2007NZ03983

PATIENT
  Age: 9 Day
  Sex: Female

DRUGS (1)
  1. NICOTINE [Suspect]
     Dosage: VIA LACTATION

REACTIONS (4)
  - ABDOMINAL PAIN [None]
  - DRUG EXPOSURE VIA BREAST MILK [None]
  - FEEDING DISORDER NEONATAL [None]
  - NEONATAL DISORDER [None]
